FAERS Safety Report 8119300-7 (Version None)
Quarter: 2012Q1

REPORT INFORMATION
  Report Type: 
  Country: None (occurrence: None)
  Receive Date: 20120207
  Receipt Date: 20120124
  Transmission Date: 20120608
  Serious: Yes (Life-Threatening)
  Sender: FDA-Public Use
  Company Number: SE-MYLANLABS-2012S1002411

PATIENT

DRUGS (3)
  1. TUMOR NECROSIS FACTOR ALPHA (TNF-ALPHA) INHIB [Suspect]
     Indication: SARCOMA
     Route: 013
  2. MELPHALAN HYDROCHLORIDE [Suspect]
     Indication: SARCOMA
     Route: 013
  3. RINGER ACETATE [Concomitant]

REACTIONS (1)
  - ACUTE MYOCARDIAL INFARCTION [None]
